FAERS Safety Report 7792614-6 (Version None)
Quarter: 2011Q4

REPORT INFORMATION
  Report Type: 
  Country: None (occurrence: None)
  Receive Date: 20111003
  Receipt Date: 20110921
  Transmission Date: 20120403
  Serious: No
  Sender: FDA-Public Use
  Company Number: US-B.I. PHARMACEUTICALS,INC./RIDGEFIELD-2011-BP-22667BP

PATIENT
  Sex: Female

DRUGS (8)
  1. SYNTHROID [Concomitant]
     Indication: HYPOTHYROIDISM
  2. TOPROL-XL [Concomitant]
     Indication: HYPERTENSION
  3. NORVASC [Concomitant]
     Indication: HYPERTENSION
  4. CLONIDINE [Concomitant]
     Indication: HYPERTENSION
  5. CRESTOR [Concomitant]
     Indication: BLOOD CHOLESTEROL INCREASED
  6. TRAVATAN Z [Concomitant]
     Indication: GLAUCOMA
  7. ASPIRIN [Concomitant]
     Indication: ATRIAL FIBRILLATION
     Dosage: 81 MG
  8. PRADAXA [Suspect]
     Indication: ATRIAL FIBRILLATION
     Dosage: 300 MG
     Route: 048
     Dates: start: 20110701

REACTIONS (4)
  - DIZZINESS [None]
  - ABDOMINAL PAIN UPPER [None]
  - HEADACHE [None]
  - BLOOD PRESSURE ABNORMAL [None]
